FAERS Safety Report 19828476 (Version 1)
Quarter: 2021Q3

REPORT INFORMATION
  Report Type: Spontaneous
  Country: TH (occurrence: TH)
  Receive Date: 20210914
  Receipt Date: 20210914
  Transmission Date: 20211014
  Serious: Yes (Other)
  Sender: FDA-Public Use
  Company Number: TH-ROCHE-2906753

PATIENT
  Age: 78 Year
  Sex: Male

DRUGS (14)
  1. RITUXIMAB. [Suspect]
     Active Substance: RITUXIMAB
     Indication: DIFFUSE LARGE B-CELL LYMPHOMA
     Route: 065
  2. VINCRISTINE [Suspect]
     Active Substance: VINCRISTINE
     Route: 065
  3. ACYCLOVIR. [Concomitant]
     Active Substance: ACYCLOVIR
  4. BACTRIM [Concomitant]
     Active Substance: SULFAMETHOXAZOLE\TRIMETHOPRIM
  5. RITUXIMAB. [Suspect]
     Active Substance: RITUXIMAB
     Route: 065
  6. DOXORUBICIN [Suspect]
     Active Substance: DOXORUBICIN
     Indication: DIFFUSE LARGE B-CELL LYMPHOMA
     Route: 065
  7. VINCRISTINE [Suspect]
     Active Substance: VINCRISTINE
     Indication: DIFFUSE LARGE B-CELL LYMPHOMA
     Route: 065
  8. CYCLOPHOSPHAMIDE. [Suspect]
     Active Substance: CYCLOPHOSPHAMIDE
     Indication: DIFFUSE LARGE B-CELL LYMPHOMA
     Route: 065
  9. BENDAMUSTINE [Suspect]
     Active Substance: BENDAMUSTINE
     Indication: DIFFUSE LARGE B-CELL LYMPHOMA
     Route: 065
  10. LEVOFLOXACIN. [Concomitant]
     Active Substance: LEVOFLOXACIN
  11. DOXORUBICIN [Suspect]
     Active Substance: DOXORUBICIN
     Route: 065
  12. PREDNISONE. [Suspect]
     Active Substance: PREDNISONE
     Indication: DIFFUSE LARGE B-CELL LYMPHOMA
     Route: 065
  13. POLATUZUMAB VEDOTIN. [Suspect]
     Active Substance: POLATUZUMAB VEDOTIN
     Indication: DIFFUSE LARGE B-CELL LYMPHOMA
     Route: 065
  14. LAMIVUDINE. [Concomitant]
     Active Substance: LAMIVUDINE

REACTIONS (12)
  - Lymphadenopathy [Unknown]
  - Pyrexia [Recovered/Resolved]
  - Palatal ulcer [Recovered/Resolved]
  - Paranasal sinus mucosal hypertrophy [Unknown]
  - Skin plaque [Unknown]
  - Skin mass [Unknown]
  - Bone marrow failure [Unknown]
  - Paranasal cyst [Unknown]
  - Pancytopenia [Not Recovered/Not Resolved]
  - Diarrhoea [Recovered/Resolved]
  - Febrile neutropenia [Unknown]
  - Viral load abnormal [Unknown]
